FAERS Safety Report 12890079 (Version 1)
Quarter: 2016Q4

REPORT INFORMATION
  Report Type: Spontaneous
  Country: IT (occurrence: IT)
  Receive Date: 20161027
  Receipt Date: 20161027
  Transmission Date: 20170207
  Serious: Yes (Other)
  Sender: FDA-Public Use
  Company Number: IT-NOVOPROD-515772

PATIENT
  Age: 65 Year
  Sex: Female

DRUGS (13)
  1. PLAVIX [Concomitant]
     Active Substance: CLOPIDOGREL BISULFATE
  2. LORAZEPAM. [Concomitant]
     Active Substance: LORAZEPAM
  3. AMLODIPINE BESILATE [Concomitant]
     Active Substance: AMLODIPINE BESYLATE
  4. PANTORC [Concomitant]
     Active Substance: PANTOPRAZOLE SODIUM
  5. VALPRESSION [Concomitant]
     Active Substance: VALSARTAN
  6. ACTRAPID [Suspect]
     Active Substance: INSULIN HUMAN
     Indication: DIABETES MELLITUS
     Dosage: 12 IU, QD
     Route: 058
  7. CATAPRESAN                         /00171101/ [Concomitant]
     Active Substance: CLONIDINE
  8. DOXAZOSINA                         /00639301/ [Concomitant]
  9. LANTUS [Suspect]
     Active Substance: INSULIN GLARGINE
     Indication: DIABETES MELLITUS
     Dosage: 14 IU
     Route: 058
  10. NEBIVOLOLO [Concomitant]
     Active Substance: NEBIVOLOL
  11. LASIX [Concomitant]
     Active Substance: FUROSEMIDE
  12. CARDIOASPIRIN [Concomitant]
     Active Substance: ASPIRIN
  13. SIMVASTATINA [Concomitant]
     Active Substance: SIMVASTATIN

REACTIONS (3)
  - Hypothermia [Recovered/Resolved]
  - Syncope [Recovered/Resolved]
  - Hypoglycaemia [Recovered/Resolved]

NARRATIVE: CASE EVENT DATE: 20160325
